FAERS Safety Report 5112547-3 (Version None)
Quarter: 2006Q3

REPORT INFORMATION
  Report Type: 
  Country: None (occurrence: None)
  Receive Date: 20060922
  Receipt Date: 20060913
  Transmission Date: 20061208
  Serious: Yes (Other)
  Sender: FDA-Public Use
  Company Number: US-ABBOTT-06P-163-0344136-00

PATIENT
  Sex: Female

DRUGS (5)
  1. KALETRA [Suspect]
     Indication: SYSTEMIC ANTIVIRAL TREATMENT
     Dosage: 798/198 MG DAILY
     Route: 048
     Dates: start: 20060131
  2. EFAVIRENZ [Suspect]
     Indication: SYSTEMIC ANTIVIRAL TREATMENT
     Route: 048
     Dates: start: 20050801, end: 20060124
  3. ZIDOVUDINE W/LAMIVUDINE [Suspect]
     Indication: SYSTEMIC ANTIVIRAL TREATMENT
     Dosage: 600/300 MG DAILY
     Route: 048
     Dates: start: 20050801, end: 20060124
  4. ZIDOVUDINE W/LAMIVUDINE [Suspect]
     Dosage: 600/300 MG DAILY
     Dates: start: 20060315
  5. TENOFOVIR DISOPROXIL FUMARATE / EMTRICITABINE [Suspect]
     Indication: SYSTEMIC ANTIVIRAL TREATMENT
     Dosage: 200/300 MG DAILY
     Route: 048
     Dates: start: 20060131, end: 20060314

REACTIONS (1)
  - STILLBIRTH [None]
